FAERS Safety Report 9837014 (Version 1)
Quarter: 2013Q4

REPORT INFORMATION
  Report Type: Spontaneous
  Country: US (occurrence: None)
  Receive Date: 20131127
  Receipt Date: 20131127
  Transmission Date: 20140711
  Serious: No
  Sender: FDA-Public Use
  Company Number: FK201302803

PATIENT
  Age: 22 Year
  Sex: Female
  Weight: 105 kg

DRUGS (2)
  1. XYLOCAINE-MPF WITH EPINEPHRINE [Suspect]
     Route: 008
     Dates: start: 20130724, end: 20130724
  2. SODIUM BICARBONAE (SODIUM BICARBONATE) [Concomitant]

REACTIONS (1)
  - Drug ineffective [None]
